FAERS Safety Report 13514022 (Version 2)
Quarter: 2017Q2

REPORT INFORMATION
  Report Type: Spontaneous
  Country: US (occurrence: US)
  Receive Date: 20170504
  Receipt Date: 20170601
  Transmission Date: 20170830
  Serious: No
  Sender: FDA-Public Use
  Company Number: US-PFIZER INC-2017190731

PATIENT
  Sex: Female

DRUGS (1)
  1. XELJANZ XR [Suspect]
     Active Substance: TOFACITINIB CITRATE
     Dosage: 11 MG, DAILY

REACTIONS (11)
  - Joint dislocation [Unknown]
  - Blood urea increased [Unknown]
  - Dry mouth [Unknown]
  - Blood cholesterol increased [Unknown]
  - Foot deformity [Unknown]
  - Synovial disorder [Unknown]
  - Hand deformity [Unknown]
  - Blood urea nitrogen/creatinine ratio increased [Unknown]
  - Joint range of motion decreased [Unknown]
  - Arthralgia [Unknown]
  - Joint ankylosis [Unknown]
